FAERS Safety Report 6023726-5 (Version None)
Quarter: 2008Q4

REPORT INFORMATION
  Report Type: 
  Country: None (occurrence: None)
  Receive Date: 20081223
  Receipt Date: 20081212
  Transmission Date: 20090506
  Serious: Yes (Hospitalization)
  Sender: FDA-Public Use
  Company Number: 100#03#2008-06250

PATIENT
  Age: 69 Year
  Sex: Female

DRUGS (3)
  1. VOLTAREN-XR [Suspect]
     Indication: MUSCULOSKELETAL PAIN
     Dosage: 50 MG DAILY, ORAL; TOPICAL; AFTER 1 DAY
     Route: 048
     Dates: start: 20081109
  2. VOLTAREN-XR [Suspect]
     Indication: MUSCULOSKELETAL PAIN
     Dosage: 50 MG DAILY, ORAL; TOPICAL; AFTER 1 DAY
     Route: 048
     Dates: start: 20081109
  3. VOLTAREN [Suspect]
     Indication: MUSCULOSKELETAL PAIN
     Dosage: TOPICAL
     Route: 061

REACTIONS (4)
  - APPLICATION SITE ERYTHEMA [None]
  - APPLICATION SITE SWELLING [None]
  - CHOKING SENSATION [None]
  - DYSPNOEA [None]
